FAERS Safety Report 4776985-0 (Version None)
Quarter: 2005Q3

REPORT INFORMATION
  Report Type: 
  Country: None (occurrence: None)
  Receive Date: 20050923
  Receipt Date: 20050718
  Transmission Date: 20060218
  Serious: Yes (Hospitalization)
  Sender: FDA-Public Use
  Company Number: US-GLAXOSMITHKLINE-A0566693A

PATIENT
  Age: 25 Year
  Sex: Female

DRUGS (2)
  1. LAMICTAL [Suspect]
     Indication: BIPOLAR DISORDER
     Route: 048
     Dates: start: 20040301
  2. SEROQUEL [Concomitant]
     Dosage: 25MG AT NIGHT
     Route: 048
     Dates: start: 20040325, end: 20050719

REACTIONS (3)
  - HYPOAESTHESIA ORAL [None]
  - STRABISMUS [None]
  - VISION BLURRED [None]
